FAERS Safety Report 16976579 (Version 1)
Quarter: 2019Q4

REPORT INFORMATION
  Report Type: Spontaneous
  Country: DK (occurrence: DK)
  Receive Date: 20191030
  Receipt Date: 20191030
  Transmission Date: 20200122
  Serious: Yes (Other)
  Sender: FDA-Public Use
  Company Number: DK-GALDERMA-DK19063243

PATIENT
  Age: 25 Year
  Sex: Female

DRUGS (3)
  1. ADAPALENE. [Suspect]
     Active Substance: ADAPALENE
     Indication: HIDRADENITIS
     Route: 065
  2. DALACIN [CLINDAMYCIN HYDROCHLORIDE] [Concomitant]
     Active Substance: CLINDAMYCIN HYDROCHLORIDE
     Indication: HIDRADENITIS
     Route: 065
  3. ISOTRETINOIN. [Concomitant]
     Active Substance: ISOTRETINOIN
     Indication: HIDRADENITIS
     Route: 065

REACTIONS (3)
  - Dry skin [Unknown]
  - Drug ineffective for unapproved indication [Unknown]
  - Product use in unapproved indication [Recovered/Resolved]
